FAERS Safety Report 8238983-4 (Version None)
Quarter: 2012Q1

REPORT INFORMATION
  Report Type: 
  Country: None (occurrence: None)
  Receive Date: 20120327
  Receipt Date: 20120313
  Transmission Date: 20120608
  Serious: Yes (Hospitalization)
  Sender: FDA-Public Use
  Company Number: PHHY2012DE021093

PATIENT
  Age: 61 Year
  Sex: Female

DRUGS (5)
  1. PANTOPRAZOLE [Concomitant]
     Dosage: UNK UKN, QD
     Route: 048
  2. MYFORTIC [Suspect]
     Indication: CHORIORETINITIS
     Dosage: 360 MG, QID
     Route: 048
     Dates: start: 20050101
  3. CLOPIDOGREL [Concomitant]
     Dosage: UNK UKN, QD
     Route: 048
  4. VALSARTAN [Concomitant]
     Indication: HYPERTENSION
     Dosage: 320 MG (1 TABLET), UNK
     Route: 048
  5. AMLODIPINE [Concomitant]
     Indication: HYPERTENSION
     Dosage: 5 MG, BID
     Route: 048

REACTIONS (6)
  - DYSPNOEA [None]
  - HEART RATE INCREASED [None]
  - HYPERTENSION [None]
  - BLOOD PRESSURE FLUCTUATION [None]
  - ANXIETY [None]
  - CARDIAC DISCOMFORT [None]
